FAERS Safety Report 14319463 (Version 2)
Quarter: 2018Q1

REPORT INFORMATION
  Report Type: Spontaneous
  Country: IT (occurrence: IT)
  Receive Date: 20171222
  Receipt Date: 20180124
  Transmission Date: 20180509
  Serious: Yes (Hospitalization)
  Sender: FDA-Public Use
  Company Number: IT-TEVA-2017-IT-838225

PATIENT
  Age: 6 Year
  Sex: Female

DRUGS (27)
  1. BUSILVEX [Suspect]
     Active Substance: BUSULFAN
     Indication: ALLOGENIC BONE MARROW TRANSPLANTATION THERAPY
     Route: 042
     Dates: start: 20161214, end: 20161217
  2. URSODEOXYCHOLIC ACID [Concomitant]
     Active Substance: URSODIOL
     Dates: start: 20161212, end: 20170120
  3. ITRACONAZOLE. [Concomitant]
     Active Substance: ITRACONAZOLE
     Route: 048
     Dates: start: 20161212, end: 20161229
  4. ALOXI 500 MICROGRAMS SOFT CAPSULES [Concomitant]
     Dates: start: 20161214, end: 20161217
  5. ENDOXAN BAXTER [Suspect]
     Active Substance: CYCLOPHOSPHAMIDE
     Indication: ALLOGENIC BONE MARROW TRANSPLANTATION THERAPY
     Route: 042
     Dates: start: 20161218, end: 20161219
  6. RANITIDINE. [Concomitant]
     Active Substance: RANITIDINE
     Dates: start: 20161213
  7. ACICLOVIR [Concomitant]
     Active Substance: ACYCLOVIR
     Dates: start: 20161219
  8. EMEND [Concomitant]
     Active Substance: APREPITANT
     Dates: start: 20161214, end: 20161216
  9. NYSTATIN. [Concomitant]
     Active Substance: NYSTATIN
     Route: 048
     Dates: start: 20161212, end: 20170120
  10. TEGRETOL [Concomitant]
     Active Substance: CARBAMAZEPINE
     Dates: start: 20161213, end: 20161218
  11. TRIMETON [Concomitant]
     Active Substance: CHLORPHENIRAMINE MALEATE
     Dates: start: 20161220, end: 20161221
  12. LASIX [Concomitant]
     Active Substance: FUROSEMIDE
     Route: 048
     Dates: start: 20161212, end: 20161212
  13. PERFALGAN [Concomitant]
     Active Substance: ACETAMINOPHEN
     Dates: start: 20161220, end: 20161221
  14. IMMUNOGLOBULIN ANTI-THYMOCYTE [Suspect]
     Active Substance: THYMOCYTE IMMUNE GLOBULIN NOS
     Indication: ALLOGENIC BONE MARROW TRANSPLANTATION THERAPY
     Route: 042
     Dates: start: 20161220, end: 20161221
  15. SANDIMMUN [Concomitant]
     Active Substance: CYCLOSPORINE
     Dates: start: 20161220
  16. CIPROFLOXACIN. [Concomitant]
     Active Substance: CIPROFLOXACIN
     Dates: start: 20161212, end: 20161229
  17. LASIX [Concomitant]
     Active Substance: FUROSEMIDE
     Route: 042
     Dates: start: 20161213
  18. ACICLOVIR [Concomitant]
     Active Substance: ACYCLOVIR
     Dates: start: 20161212, end: 20161218
  19. DIAMINOCILLINA [Concomitant]
     Active Substance: PENICILLIN G BENZATHINE
     Dates: start: 20161213
  20. PRIVIGEN [Concomitant]
     Active Substance: HUMAN IMMUNOGLOBULIN G
     Dates: start: 20161217, end: 20170109
  21. URBASON [Concomitant]
     Active Substance: METHYLPREDNISOLONE
     Route: 042
     Dates: start: 20161220, end: 20161221
  22. DELTACORTENE [Concomitant]
     Active Substance: PREDNISONE
     Dates: start: 20161213, end: 20161220
  23. METHOTREXATE. [Suspect]
     Active Substance: METHOTREXATE
     Indication: ALLOGENIC BONE MARROW TRANSPLANTATION THERAPY
     Route: 042
     Dates: start: 20161223, end: 20161228
  24. ALKERAN [Suspect]
     Active Substance: MELPHALAN
     Indication: ALLOGENIC BONE MARROW TRANSPLANTATION THERAPY
     Route: 042
     Dates: start: 20161220, end: 20161220
  25. LEDERFOLIN [Concomitant]
     Active Substance: LEUCOVORIN CALCIUM
     Dates: start: 20161224, end: 20161230
  26. HEPARIN [Concomitant]
     Active Substance: HEPARIN SODIUM
     Dates: start: 20161213
  27. BACTRIM [Concomitant]
     Active Substance: SULFAMETHOXAZOLE\TRIMETHOPRIM
     Dates: end: 20161218

REACTIONS (3)
  - Vulvovaginal candidiasis [Recovered/Resolved]
  - Vulvovaginal pruritus [Recovered/Resolved]
  - Haematuria [Recovered/Resolved]

NARRATIVE: CASE EVENT DATE: 20170103
